FAERS Safety Report 13339166 (Version 8)
Quarter: 2020Q1

REPORT INFORMATION
  Report Type: Spontaneous
  Country: US (occurrence: US)
  Receive Date: 20170315
  Receipt Date: 20200316
  Transmission Date: 20200409
  Serious: Yes (Other)
  Sender: FDA-Public Use
  Company Number: US-PFIZER INC-2017109259

PATIENT
  Age: 75 Year
  Sex: Female
  Weight: 60.32 kg

DRUGS (2)
  1. XELJANZ XR [Suspect]
     Active Substance: TOFACITINIB CITRATE
     Dosage: 1 DF, DAILY
     Route: 048
     Dates: start: 201704
  2. XELJANZ XR [Suspect]
     Active Substance: TOFACITINIB CITRATE
     Indication: RHEUMATOID ARTHRITIS
     Dosage: 11 MG, DAILY
     Dates: start: 20140629

REACTIONS (5)
  - Hepatic enzyme increased [Unknown]
  - Blood cholesterol increased [Recovered/Resolved]
  - Sinus disorder [Unknown]
  - Sluggishness [Unknown]
  - Renal impairment [Unknown]

NARRATIVE: CASE EVENT DATE: 201608
